FAERS Safety Report 21283855 (Version 2)
Quarter: 2022Q3

REPORT INFORMATION
  Report Type: Spontaneous
  Country: CA (occurrence: CA)
  Receive Date: 20220901
  Receipt Date: 20220913
  Transmission Date: 20221026
  Serious: No
  Sender: FDA-Public Use
  Company Number: CA-BAUSCH-BL-2022-021190

PATIENT
  Sex: Female
  Weight: 76.272 kg

DRUGS (4)
  1. JUBLIA [Suspect]
     Active Substance: EFINACONAZOLE
     Indication: Onychomycosis
     Route: 061
     Dates: start: 20220825
  2. JUBLIA [Suspect]
     Active Substance: EFINACONAZOLE
     Indication: Product use in unapproved indication
  3. AMLODIPINE [Concomitant]
     Active Substance: AMLODIPINE BESYLATE
     Indication: Product used for unknown indication
  4. METOPROLOL [Concomitant]
     Active Substance: METOPROLOL
     Indication: Product used for unknown indication

REACTIONS (3)
  - Product use issue [Unknown]
  - Product prescribing issue [Unknown]
  - No adverse event [Unknown]
